FAERS Safety Report 6584814-8 (Version None)
Quarter: 2010Q1

REPORT INFORMATION
  Report Type: 
  Country: None (occurrence: None)
  Receive Date: 20100217
  Receipt Date: 20100205
  Transmission Date: 20100710
  Serious: No
  Sender: FDA-Public Use
  Company Number: US-JNJFOC-20100203984

PATIENT
  Sex: Male
  Weight: 81.65 kg

DRUGS (2)
  1. FENTANYL-100 [Suspect]
     Indication: ARTHRALGIA
  2. UNKNOWN  MEDICATION [Concomitant]
     Route: 065

REACTIONS (1)
  - WRONG TECHNIQUE IN DRUG USAGE PROCESS [None]
